FAERS Safety Report 16802284 (Version 2)
Quarter: 2019Q4

REPORT INFORMATION
  Report Type: Spontaneous
  Country: US (occurrence: US)
  Receive Date: 20190912
  Receipt Date: 20191004
  Transmission Date: 20200122
  Serious: No
  Sender: FDA-Public Use
  Company Number: US-SA-2019SA249040

PATIENT
  Age: 34 Year
  Sex: Female

DRUGS (1)
  1. DUPIXENT [Suspect]
     Active Substance: DUPILUMAB
     Indication: DERMATITIS
     Dosage: 300 MG, QOW
     Route: 058
     Dates: start: 20190425

REACTIONS (4)
  - Dermatitis [Recovering/Resolving]
  - Oral herpes [Recovering/Resolving]
  - Unevaluable event [Not Recovered/Not Resolved]
  - Product dose omission [Unknown]
